FAERS Safety Report 6250871-1 (Version None)
Quarter: 2009Q2

REPORT INFORMATION
  Report Type: 
  Country: None (occurrence: None)
  Receive Date: 20090630
  Receipt Date: 20090313
  Transmission Date: 20091009
  Serious: No
  Sender: FDA-Public Use
  Company Number: US-BAUSCH-2009BL001122

PATIENT
  Age: 45 Year
  Sex: Female
  Weight: 47 kg

DRUGS (4)
  1. ALAWAY [Suspect]
     Indication: EYE PRURITUS
     Route: 047
     Dates: start: 20090313, end: 20090313
  2. ALAWAY [Suspect]
     Indication: EYE IRRITATION
     Route: 047
     Dates: start: 20090313, end: 20090313
  3. NASONEX [Concomitant]
     Indication: SNEEZING
     Route: 045
     Dates: start: 20090313
  4. LORATADINE [Concomitant]
     Indication: HYPERSENSITIVITY
     Route: 048
     Dates: start: 20090313

REACTIONS (2)
  - ANXIETY [None]
  - CHEST DISCOMFORT [None]
